FAERS Safety Report 10779028 (Version 1)
Quarter: 2015Q1

REPORT INFORMATION
  Report Type: Spontaneous
  Country: US (occurrence: None)
  Receive Date: 20150206
  Receipt Date: 20150206
  Transmission Date: 20150721
  Serious: Yes (Disabling, Other)
  Sender: FDA-Public Use
  Company Number: US2015GSK013974

PATIENT
  Sex: Male

DRUGS (2)
  1. DOLUTEGRAVIR (DOLUTEGRAVIR) TABLET [Suspect]
     Active Substance: DOLUTEGRAVIR
     Indication: HIV INFECTION
     Dates: start: 2013, end: 2015
  2. TENOFOVIR/EMTRICITABINE [Suspect]
     Active Substance: EMTRICITABINE\TENOFOVIR
     Indication: PRODUCT USED FOR UNKNOWN INDICATION
     Dates: start: 2013

REACTIONS (2)
  - Jaundice cholestatic [None]
  - Hepatitis C [None]

NARRATIVE: CASE EVENT DATE: 20140918
